FAERS Safety Report 13195012 (Version 1)
Quarter: 2017Q1

REPORT INFORMATION
  Report Type: Spontaneous
  Country: IL (occurrence: IL)
  Receive Date: 20170207
  Receipt Date: 20170207
  Transmission Date: 20170428
  Serious: Yes (Other)
  Sender: FDA-Public Use
  Company Number: IL-BAUSCH-BL-2015-014324

PATIENT
  Age: 3 Month
  Sex: Male

DRUGS (1)
  1. CYCLOPENTOLATE. [Suspect]
     Active Substance: CYCLOPENTOLATE
     Indication: PUPIL DILATION PROCEDURE
     Dosage: TWICE IN EACH EYE 5 MIN APART
     Route: 047

REACTIONS (2)
  - Seizure [Unknown]
  - Drug hypersensitivity [Unknown]

NARRATIVE: CASE EVENT DATE: 2003
